FAERS Safety Report 10372379 (Version 2)
Quarter: 2014Q3

REPORT INFORMATION
  Report Type: Spontaneous
  Country: US (occurrence: US)
  Receive Date: 20140808
  Receipt Date: 20140808
  Transmission Date: 20150326
  Serious: Yes (Other)
  Sender: FDA-Public Use
  Company Number: US-BRISTOL-MYERS SQUIBB COMPANY-19135789

PATIENT
  Age: 54 Year
  Sex: Male
  Weight: 46.71 kg

DRUGS (7)
  1. ADVIL [Concomitant]
     Active Substance: IBUPROFEN
  2. FISH OIL [Concomitant]
     Active Substance: FISH OIL
  3. SPRYCEL [Suspect]
     Active Substance: DASATINIB
     Indication: CHRONIC MYELOID LEUKAEMIA
     Route: 048
     Dates: start: 20130718
  4. VITAMIN D [Concomitant]
     Active Substance: CHOLECALCIFEROL
  5. ALEVE [Concomitant]
     Active Substance: NAPROXEN SODIUM
  6. PRILOSEC [Concomitant]
     Active Substance: OMEPRAZOLE MAGNESIUM
  7. MULTIVITAMIN [Concomitant]
     Active Substance: VITAMINS

REACTIONS (2)
  - Dizziness [Not Recovered/Not Resolved]
  - Pancreatitis [Unknown]

NARRATIVE: CASE EVENT DATE: 20130718
